FAERS Safety Report 5305574-4 (Version None)
Quarter: 2007Q2

REPORT INFORMATION
  Report Type: 
  Country: None (occurrence: None)
  Receive Date: 20070424
  Receipt Date: 20070419
  Transmission Date: 20071010
  Serious: Yes (Hospitalization)
  Sender: FDA-Public Use
  Company Number: ES-AVENTIS-200713082GDDC

PATIENT
  Age: 2 Year
  Sex: Male

DRUGS (1)
  1. ARAVA [Suspect]
     Dosage: DOSE: 20MG X 23 TABLETS
     Route: 048

REACTIONS (1)
  - ACCIDENTAL OVERDOSE [None]
